FAERS Safety Report 9090982 (Version 1)
Quarter: 2013Q1

REPORT INFORMATION
  Report Type: Report from Study
  Country: US (occurrence: US)
  Receive Date: 20130131
  Receipt Date: 20130131
  Transmission Date: 20140127
  Serious: No
  Sender: FDA-Public Use
  Company Number: US-ABBOTT-12P-163-1011650-00

PATIENT
  Age: 35 Year
  Sex: Female

DRUGS (10)
  1. HUMIRA [Suspect]
     Indication: RHEUMATOID ARTHRITIS
     Dates: start: 20121106
  2. TRAZODONE [Concomitant]
     Indication: INSOMNIA
     Dosage: 50 MG, 1 AT BEDTIME
  3. METHOTREXATE [Concomitant]
     Indication: RHEUMATOID ARTHRITIS
     Dosage: 2.5 MG, 3 EVERY MONDAY
  4. PLAQUENIL [Concomitant]
     Indication: RHEUMATOID ARTHRITIS
  5. DEPOKOTE ER [Concomitant]
     Indication: MIGRAINE PROPHYLAXIS
  6. TORADOL [Concomitant]
     Indication: HEADACHE
     Dosage: 10 MG, 1/DAY UP TO 3X/DAY, AS NEEDED
  7. FOLIC ACID [Concomitant]
     Indication: RHEUMATOID ARTHRITIS
  8. ATENOLOL [Concomitant]
     Indication: SUPRAVENTRICULAR TACHYCARDIA
  9. CYMBALTA [Concomitant]
     Indication: PAIN
     Dosage: 60 MG, 1 AT BEDTIME
  10. LORTAB [Concomitant]
     Indication: RHEUMATOID ARTHRITIS
     Dosage: 7.5 MG, 1/DAY UP TO 2/DAY, AS NEEDED

REACTIONS (3)
  - Incorrect dose administered [Unknown]
  - Nausea [Recovering/Resolving]
  - Migraine [Recovered/Resolved]
